FAERS Safety Report 5939814-5 (Version None)
Quarter: 2008Q4

REPORT INFORMATION
  Report Type: 
  Country: None (occurrence: None)
  Receive Date: 20081104
  Receipt Date: 20081023
  Transmission Date: 20090506
  Serious: Yes (Other)
  Sender: FDA-Public Use
  Company Number: US-JNJFOC-20080906587

PATIENT
  Sex: Female
  Weight: 57.15 kg

DRUGS (17)
  1. REMICADE [Suspect]
     Route: 042
  2. REMICADE [Suspect]
     Indication: RHEUMATOID ARTHRITIS
     Route: 042
  3. TRICOR [Concomitant]
  4. TOPROL-XL [Concomitant]
     Dosage: ONE AND ONE HALF TABLETS
  5. DIGOXIN [Concomitant]
  6. LIPITOR [Concomitant]
  7. METHOTREXATE [Concomitant]
  8. FAMOTIDINE [Concomitant]
  9. DEMADEX [Concomitant]
  10. ACTONEL [Concomitant]
  11. COUMADIN [Concomitant]
     Dosage: CHANGES FROM 1 MG TO 2 MG, TAKEN IN EVENING
  12. FOLIC ACID [Concomitant]
     Dosage: EVENING
  13. CALCIUM [Concomitant]
  14. NIACIN [Concomitant]
  15. DOCUSATE SODIUM [Concomitant]
  16. FISH OIL [Concomitant]
  17. MULTIPLE VITAMIN PLUS MINERALS [Concomitant]

REACTIONS (1)
  - DEMENTIA [None]
